FAERS Safety Report 7067432 (Version 4)
Quarter: 2013Q1

REPORT INFORMATION
  Report Type: Spontaneous
  Country: OM (occurrence: None)
  Receive Date: 20090722
  Receipt Date: 20130328
  Transmission Date: 20140127
  Serious: Yes (Death)
  Sender: FDA-Public Use
  Company Number: 325339

PATIENT
  Age: 60 Year
  Sex: Male

DRUGS (3)
  1. PHENYTOIN [Suspect]
     Indication: EPILEPSY
     Dosage: 100 MG, 3 DAY, INTRAVENOUS
     Route: 042
     Dates: start: 20090213, end: 20090314
  2. (NIFEDIPINE) [Concomitant]
  3. PARACETAMOL [Concomitant]

REACTIONS (1)
  - Toxic epidermal necrolysis [None]
